FAERS Safety Report 18749106 (Version 3)
Quarter: 2024Q1

REPORT INFORMATION
  Report Type: Other
  Country: US (occurrence: None)
  Receive Date: 20210116
  Receipt Date: 20240124
  Transmission Date: 20240410
  Serious: Yes (Other)
  Sender: FDA-Public Use
  Company Number: US-ROCHE-2748975

PATIENT
  Age: 53 Year
  Sex: Female

DRUGS (3)
  1. RITUXAN [Suspect]
     Active Substance: RITUXIMAB
     Indication: Systemic lupus erythematosus
     Dosage: ANTICIPATED DATE OF TREATMENT: //2021
     Route: 041
     Dates: start: 201810, end: 201810
  2. RITUXAN [Suspect]
     Active Substance: RITUXIMAB
     Indication: Interstitial lung disease
     Dosage: 1000MG, EVERY 2 WEEK X 2
     Route: 042
     Dates: start: 201907
  3. RITUXAN [Suspect]
     Active Substance: RITUXIMAB
     Indication: Myositis

REACTIONS (4)
  - Pulmonary fibrosis [Not Recovered/Not Resolved]
  - Pneumonia [Unknown]
  - Off label use [Unknown]
  - Inflammation [Not Recovered/Not Resolved]

NARRATIVE: CASE EVENT DATE: 20181001
